FAERS Safety Report 12399103 (Version 1)
Quarter: 2016Q2

REPORT INFORMATION
  Report Type: Spontaneous
  Country: CH (occurrence: CH)
  Receive Date: 20160524
  Receipt Date: 20160524
  Transmission Date: 20160815
  Serious: Yes (Hospitalization)
  Sender: FDA-Public Use
  Company Number: CH-MEDA-2016050071

PATIENT
  Age: 89 Year
  Sex: Male

DRUGS (10)
  1. PANTOPRAZOLE [Concomitant]
     Active Substance: PANTOPRAZOLE SODIUM
  2. SIFROL 0.25 MG [Suspect]
     Active Substance: PRAMIPEXOLE DIHYDROCHLORIDE
     Route: 048
     Dates: end: 201601
  3. ACIDUM FOLICUM [Concomitant]
     Active Substance: FOLIC ACID
  4. TOREM [Suspect]
     Active Substance: TORSEMIDE
     Indication: CARDIAC FAILURE
     Route: 048
     Dates: end: 201601
  5. MARCOUMAR [Concomitant]
     Active Substance: PHENPROCOUMON
  6. BELOC ZOK [Concomitant]
     Active Substance: METOPROLOL SUCCINATE
  7. DAFALGAN [Concomitant]
     Active Substance: ACETAMINOPHEN
  8. TRIATEC [Concomitant]
     Active Substance: RAMIPRIL
  9. NOVALGIN [Concomitant]
     Active Substance: METAMIZOLE SODIUM
  10. CRESTOR [Concomitant]
     Active Substance: ROSUVASTATIN CALCIUM

REACTIONS (2)
  - Hyponatraemia [Recovered/Resolved]
  - Drug interaction [Recovered/Resolved]

NARRATIVE: CASE EVENT DATE: 20160117
